FAERS Safety Report 15095115 (Version 1)
Quarter: 2018Q3

REPORT INFORMATION
  Report Type: Spontaneous
  Country: IT (occurrence: IT)
  Receive Date: 20180702
  Receipt Date: 20180702
  Transmission Date: 20181010
  Serious: Yes (Other)
  Sender: FDA-Public Use
  Company Number: IT-TEVA-2018-IT-917495

PATIENT
  Age: 52 Year
  Sex: Male

DRUGS (4)
  1. CARBOLITHIUM 300 MG CAPSULE RIGIDE [Suspect]
     Active Substance: LITHIUM CARBONATE
     Indication: DEPRESSION
     Dosage: 900 MILLIGRAM DAILY;
     Route: 048
     Dates: start: 20170516
  2. ESCITALOPRAM [Suspect]
     Active Substance: ESCITALOPRAM OXALATE
     Indication: ANXIETY
     Dosage: 20 MILLIGRAM DAILY;
     Route: 048
     Dates: start: 20170516
  3. FRONTAL 1 MG COMPRESSE [Suspect]
     Active Substance: ALPRAZOLAM
     Indication: ANXIETY
     Dosage: 2 MILLIGRAM DAILY;
     Route: 048
     Dates: start: 20170516
  4. DEPAKIN [Suspect]
     Active Substance: VALPROATE SODIUM
     Indication: EPILEPSY
     Dosage: 1000 MILLIGRAM DAILY;
     Route: 048
     Dates: start: 20170516

REACTIONS (3)
  - Malaise [Recovering/Resolving]
  - Loss of consciousness [Recovering/Resolving]
  - Agitation [Recovering/Resolving]

NARRATIVE: CASE EVENT DATE: 20171202
